FAERS Safety Report 6886863 (Version 2)
Quarter: 2020Q3

REPORT INFORMATION
  Report Type: Report from Study
  Country: HU (occurrence: HU)
  Receive Date: 20090120
  Receipt Date: 20090123
  Transmission Date: 20201104
  Serious: Yes (Hospitalization, Other)
  Sender: FDA-Public Use
  Company Number: HU-ROCHE-604199

PATIENT
  Sex: Female
  Weight: 64 kg

DRUGS (3)
  1. FULVESTRANT. [Concomitant]
     Active Substance: FULVESTRANT
  2. CALCIUM CARBONATE. [Concomitant]
     Active Substance: CALCIUM CARBONATE
  3. IBANDRONIC ACID. [Suspect]
     Active Substance: IBANDRONIC ACID
     Dosage: DOSAGE FORM: INFUSION. THERAPY PERMANENTLY DISCONTINUED.
     Route: 042
     Dates: start: 20081218, end: 20081218

REACTIONS (3)
  - Pulmonary embolism [Unknown]
  - Tachyarrhythmia [Unknown]
  - Hypertensive crisis [Recovered/Resolved]
